FAERS Safety Report 15248302 (Version 1)
Quarter: 2018Q3

REPORT INFORMATION
  Report Type: Spontaneous
  Country: US (occurrence: US)
  Receive Date: 20180715
  Receipt Date: 20180715
  Transmission Date: 20181010
  Serious: Yes (Other)
  Sender: FDA-Public Use
  Company Number: None

PATIENT
  Age: 44 Year
  Sex: Female
  Weight: 101.25 kg

DRUGS (3)
  1. AMOXICILLIN 500 MG CAPSULES [Suspect]
     Active Substance: AMOXICILLIN
     Indication: TOOTH INFECTION
     Dosage: ?          QUANTITY:1 CAPSULE(S);?
     Route: 048
     Dates: start: 20180712, end: 20180715
  2. MULTIVITAMIN [Concomitant]
     Active Substance: VITAMINS
  3. VIT D SUPPLEMENT [Concomitant]

REACTIONS (5)
  - Abdominal distension [None]
  - Constipation [None]
  - Abdominal pain upper [None]
  - Nausea [None]
  - Flatulence [None]

NARRATIVE: CASE EVENT DATE: 20180713
